FAERS Safety Report 5795046-5 (Version None)
Quarter: 2008Q2

REPORT INFORMATION
  Report Type: 
  Country: None (occurrence: None)
  Receive Date: 20080630
  Receipt Date: 20080312
  Transmission Date: 20081010
  Serious: No
  Sender: FDA-Public Use
  Company Number: US-BRISTOL-MYERS SQUIBB COMPANY-14112767

PATIENT
  Age: 38 Year
  Sex: Female
  Weight: 77 kg

DRUGS (15)
  1. ORENCIA [Suspect]
     Indication: RHEUMATOID ARTHRITIS
     Dosage: RECEIVED 5-6 TREATMENT
     Route: 042
     Dates: start: 20071001
  2. ORENCIA [Suspect]
     Indication: SYSTEMIC LUPUS ERYTHEMATOSUS
     Dosage: RECEIVED 5-6 TREATMENT
     Route: 042
     Dates: start: 20071001
  3. FOLIC ACID [Concomitant]
  4. WELLBUTRIN [Concomitant]
  5. CYMBALTA [Concomitant]
  6. PROVIGIL [Concomitant]
  7. LITHIUM CARBONATE [Concomitant]
  8. PLAQUENIL [Concomitant]
  9. OXYCONTIN [Concomitant]
  10. METHOTREXATE [Concomitant]
  11. VICODIN [Concomitant]
  12. XANAX [Concomitant]
  13. DICLOFENAC SODIUM [Concomitant]
  14. FLEXERIL [Concomitant]
  15. CONTRACEPTIVE [Concomitant]
     Route: 048

REACTIONS (3)
  - ARTHRALGIA [None]
  - JOINT SWELLING [None]
  - NAUSEA [None]
